FAERS Safety Report 24322108 (Version 1)
Quarter: 2024Q3

REPORT INFORMATION
  Report Type: Report from Study
  Country: US (occurrence: None)
  Receive Date: 20240916
  Receipt Date: 20240916
  Transmission Date: 20241016
  Serious: Yes (Other)
  Sender: ASTRAZENECA
  Company Number: 2024A208085

PATIENT
  Sex: Female

DRUGS (2)
  1. FASENRA [Suspect]
     Active Substance: BENRALIZUMAB
     Indication: Asthma
     Route: 058
     Dates: start: 202210
  2. FASENRA [Suspect]
     Active Substance: BENRALIZUMAB
     Indication: Asthma
     Route: 058
     Dates: start: 202210

REACTIONS (1)
  - Gastrointestinal disorder [Unknown]
